FAERS Safety Report 9988667 (Version 3)
Quarter: 2022Q3

REPORT INFORMATION
  Report Type: Spontaneous
  Country: US (occurrence: US)
  Receive Date: 20140310
  Receipt Date: 20220824
  Transmission Date: 20221027
  Serious: Yes (Other)
  Sender: FDA-Public Use
  Company Number: US-BEH-2011028826

PATIENT
  Age: 50 Year
  Sex: Female
  Weight: 68.04 kg

DRUGS (90)
  1. ZEMAIRA [Suspect]
     Active Substance: .ALPHA.1-PROTEINASE INHIBITOR HUMAN
     Indication: Emphysema
     Dosage: INFUSED 0.08ML/KG/MIN (6.3ML/MIN)
     Route: 042
     Dates: start: 20110510
  2. ZEMAIRA [Suspect]
     Active Substance: .ALPHA.1-PROTEINASE INHIBITOR HUMAN
     Dosage: UNK
     Route: 065
     Dates: start: 20110527
  3. ZEMAIRA [Suspect]
     Active Substance: .ALPHA.1-PROTEINASE INHIBITOR HUMAN
     Dosage: 0.08 ML/KG/MIN
     Route: 042
     Dates: start: 20110630, end: 20110708
  4. ZEMAIRA [Suspect]
     Active Substance: .ALPHA.1-PROTEINASE INHIBITOR HUMAN
     Dosage: INFUSED 6.4 ML/MIN
     Route: 042
  5. ZEMAIRA [Suspect]
     Active Substance: .ALPHA.1-PROTEINASE INHIBITOR HUMAN
     Dosage: UNK
     Route: 065
     Dates: start: 20110812, end: 20110812
  6. ZEMAIRA [Suspect]
     Active Substance: .ALPHA.1-PROTEINASE INHIBITOR HUMAN
     Dosage: UNK
     Route: 065
     Dates: start: 20110819, end: 20110902
  7. ZEMAIRA [Suspect]
     Active Substance: .ALPHA.1-PROTEINASE INHIBITOR HUMAN
     Dosage: UNK
     Route: 065
     Dates: start: 20110909, end: 20110909
  8. ZEMAIRA [Suspect]
     Active Substance: .ALPHA.1-PROTEINASE INHIBITOR HUMAN
     Dosage: UNK
     Route: 065
     Dates: start: 20110930
  9. ZEMAIRA [Suspect]
     Active Substance: .ALPHA.1-PROTEINASE INHIBITOR HUMAN
     Dosage: UNK
     Route: 065
     Dates: start: 20111007
  10. ZEMAIRA [Suspect]
     Active Substance: .ALPHA.1-PROTEINASE INHIBITOR HUMAN
     Dosage: 60 MG/KG WEEKLY
     Route: 042
     Dates: start: 20111028, end: 20111028
  11. ZEMAIRA [Suspect]
     Active Substance: .ALPHA.1-PROTEINASE INHIBITOR HUMAN
     Dosage: UNK
     Route: 065
     Dates: start: 20111104
  12. ZEMAIRA [Suspect]
     Active Substance: .ALPHA.1-PROTEINASE INHIBITOR HUMAN
     Dosage: UNK
     Route: 065
     Dates: start: 20111125, end: 20111125
  13. ZEMAIRA [Suspect]
     Active Substance: .ALPHA.1-PROTEINASE INHIBITOR HUMAN
     Dosage: 945 MG/20 ML VIAL
     Route: 042
     Dates: start: 20110511
  14. ZEMAIRA [Suspect]
     Active Substance: .ALPHA.1-PROTEINASE INHIBITOR HUMAN
     Dosage: 1034 MG/20 ML VIAL
     Route: 042
     Dates: start: 20110511
  15. ZEMAIRA [Suspect]
     Active Substance: .ALPHA.1-PROTEINASE INHIBITOR HUMAN
     Dosage: 1034 MG/20 ML VIAL
     Route: 042
     Dates: start: 20110512
  16. ZEMAIRA [Suspect]
     Active Substance: .ALPHA.1-PROTEINASE INHIBITOR HUMAN
     Dosage: 1034 MG/20 ML VIAL
     Route: 058
     Dates: start: 20120113
  17. ZEMAIRA [Suspect]
     Active Substance: .ALPHA.1-PROTEINASE INHIBITOR HUMAN
     Dosage: 6 ML /MIN
     Route: 042
     Dates: start: 20120127
  18. ZEMAIRA [Suspect]
     Active Substance: .ALPHA.1-PROTEINASE INHIBITOR HUMAN
     Dosage: UNK
     Route: 042
  19. ZEMAIRA [Suspect]
     Active Substance: .ALPHA.1-PROTEINASE INHIBITOR HUMAN
     Dosage: UNK
     Route: 058
     Dates: start: 20110511
  20. ZEMAIRA [Suspect]
     Active Substance: .ALPHA.1-PROTEINASE INHIBITOR HUMAN
     Dosage: 1045 MG VIAL
     Route: 042
  21. ZEMAIRA [Suspect]
     Active Substance: .ALPHA.1-PROTEINASE INHIBITOR HUMAN
     Dosage: 997 MG/ 20 ML VIAL
     Route: 042
     Dates: start: 20110511
  22. ZEMAIRA [Suspect]
     Active Substance: .ALPHA.1-PROTEINASE INHIBITOR HUMAN
     Dosage: 997 MG/20 ML VIAL
     Route: 042
     Dates: start: 20110510
  23. ZEMAIRA [Suspect]
     Active Substance: .ALPHA.1-PROTEINASE INHIBITOR HUMAN
     Dosage: UNK
     Route: 042
     Dates: start: 20110510
  24. ZEMAIRA [Suspect]
     Active Substance: .ALPHA.1-PROTEINASE INHIBITOR HUMAN
     Dosage: UNK
     Route: 065
     Dates: start: 20120315
  25. ZEMAIRA [Suspect]
     Active Substance: .ALPHA.1-PROTEINASE INHIBITOR HUMAN
     Dosage: 0.08 ML/KG/MINUTE (6 ML PER MINUTE)
     Route: 042
     Dates: start: 20120906, end: 20120906
  26. ZEMAIRA [Suspect]
     Active Substance: .ALPHA.1-PROTEINASE INHIBITOR HUMAN
     Dosage: 875 MG/VIAL;MAX. RATE 0.08 ML/KG/MIN (5.8 ML/MIN)
     Route: 042
  27. ZEMAIRA [Suspect]
     Active Substance: .ALPHA.1-PROTEINASE INHIBITOR HUMAN
     Dosage: 5.8 ML/MIN
     Route: 065
     Dates: start: 20130719, end: 20130719
  28. ZEMAIRA [Suspect]
     Active Substance: .ALPHA.1-PROTEINASE INHIBITOR HUMAN
     Dosage: 956 MG/VIAL; 5.6 ML/MIN WITHIN 3 HOURS
     Route: 042
     Dates: start: 20130912, end: 20130912
  29. ZEMAIRA [Suspect]
     Active Substance: .ALPHA.1-PROTEINASE INHIBITOR HUMAN
     Dosage: 60 MILLIGRAM/KILOGRAM, QW
     Route: 042
  30. ZEMAIRA [Suspect]
     Active Substance: .ALPHA.1-PROTEINASE INHIBITOR HUMAN
     Dosage: UNK
     Route: 042
     Dates: start: 20131023
  31. ZEMAIRA [Suspect]
     Active Substance: .ALPHA.1-PROTEINASE INHIBITOR HUMAN
     Dosage: 944 MG/VIAL; MAX. RATE 0.08 ML/KG/MIN (5.4 ML/MIN)
     Route: 042
  32. ZEMAIRA [Suspect]
     Active Substance: .ALPHA.1-PROTEINASE INHIBITOR HUMAN
     Dosage: 60 MG/KG WEEKLY
     Route: 042
  33. PROMETRIUM [Concomitant]
     Active Substance: PROGESTERONE
  34. ADVAIR HFA [Concomitant]
     Active Substance: FLUTICASONE PROPIONATE\SALMETEROL XINAFOATE
  35. SPIRIVA [Concomitant]
     Active Substance: TIOTROPIUM BROMIDE MONOHYDRATE
     Dosage: 18 MCG
     Route: 055
  36. ASPIRIN [Concomitant]
     Active Substance: ASPIRIN
  37. TRILEPTAL [Concomitant]
     Active Substance: OXCARBAZEPINE
  38. ADVIL [Concomitant]
     Active Substance: IBUPROFEN
  39. SODIUM CHLORIDE [Concomitant]
     Active Substance: SODIUM CHLORIDE
  40. VIVELLE-DOT [Concomitant]
     Active Substance: ESTRADIOL
     Dosage: 0.1 MG
     Route: 062
  41. VITAMINS [Concomitant]
     Active Substance: VITAMINS
  42. VITAMIN C [Concomitant]
     Active Substance: ASCORBIC ACID
  43. FISH OIL [Concomitant]
     Active Substance: FISH OIL
  44. VITAMIN D [Concomitant]
     Active Substance: VITAMIN D NOS
  45. MAGNESIUM [Concomitant]
     Active Substance: MAGNESIUM
  46. CALCIUM [Concomitant]
     Active Substance: CALCIUM
  47. CANASA [Concomitant]
     Active Substance: MESALAMINE
  48. LORTAB [Concomitant]
     Active Substance: ACETAMINOPHEN\HYDROCODONE BITARTRATE
     Dosage: 5-500
     Route: 048
  49. LACTULOSE [Concomitant]
     Active Substance: LACTULOSE
  50. VITAMIN D3 [Concomitant]
     Active Substance: CHOLECALCIFEROL
     Dosage: 5000 UNITS
  51. TYLENOL [Concomitant]
     Active Substance: ACETAMINOPHEN
  52. PROMETHAZINE [Concomitant]
     Active Substance: PROMETHAZINE HYDROCHLORIDE
     Dosage: 25 MG
     Route: 048
  53. MIRALAX [Concomitant]
     Active Substance: POLYETHYLENE GLYCOL 3350
     Dosage: POWDER PACKET
  54. PERCOCET [Concomitant]
     Active Substance: ACETAMINOPHEN\OXYCODONE HYDROCHLORIDE
     Dosage: 7.5-325
  55. COLACE [Concomitant]
     Active Substance: DOCUSATE SODIUM
     Dosage: 100 MG
     Route: 048
  56. KEFLEX [Concomitant]
     Active Substance: CEPHALEXIN
  57. SODIUM CHLORIDE [Concomitant]
     Active Substance: SODIUM CHLORIDE
  58. NEURONTIN [Concomitant]
     Active Substance: GABAPENTIN
  59. SEREVENT DISKUS [Concomitant]
     Active Substance: SALMETEROL XINAFOATE
     Dosage: 50 MCG DISKUS
  60. FACTIVE [Concomitant]
     Active Substance: GEMIFLOXACIN MESYLATE
  61. SACCHAROMYCES CEREVISIAE [Concomitant]
     Active Substance: SACCHAROMYCES CEREVISIAE
     Dosage: 250 MG
     Route: 048
  62. SAVELLA [Concomitant]
     Active Substance: MILNACIPRAN HYDROCHLORIDE
  63. VOLTAREN [Concomitant]
     Active Substance: DICLOFENAC SODIUM
     Dosage: 1% GEL
  64. DIPHENHYDRAMINE [Concomitant]
     Active Substance: DIPHENHYDRAMINE
     Indication: Premedication
  65. DIPHENHYDRAMINE [Concomitant]
     Active Substance: DIPHENHYDRAMINE
     Indication: Premedication
  66. LMX [Concomitant]
     Indication: Premedication
  67. LMX [Concomitant]
     Indication: Premedication
  68. SALINE [Concomitant]
     Active Substance: SODIUM CHLORIDE
  69. EPIPEN [Concomitant]
     Active Substance: EPINEPHRINE
     Indication: Premedication
  70. Protonix DR [Concomitant]
     Dosage: 40 MG
     Route: 048
  71. AMITRIPTYLINE [Concomitant]
     Active Substance: AMITRIPTYLINE
     Dosage: 25 MG
     Route: 048
  72. DIETARY SUPPLEMENT [Concomitant]
     Active Substance: DIETARY SUPPLEMENT
  73. FLEXERIL [Concomitant]
     Active Substance: CYCLOBENZAPRINE HYDROCHLORIDE
     Dosage: 10 MG
     Route: 048
  74. ZOFRAN [Concomitant]
     Active Substance: ONDANSETRON HYDROCHLORIDE
     Dosage: 4 MG
     Route: 048
  75. Acetaminophen caffeine [Concomitant]
     Dosage: 500/65 MG
  76. MINERAL OIL [Concomitant]
     Active Substance: MINERAL OIL
  77. PREDNISONE [Concomitant]
     Active Substance: PREDNISONE
  78. AMITIZA [Concomitant]
     Active Substance: LUBIPROSTONE
  79. ACETAMINOPHEN\HYDROCODONE [Concomitant]
     Active Substance: ACETAMINOPHEN\HYDROCODONE
  80. LINZESS [Concomitant]
     Active Substance: LINACLOTIDE
  81. MINIVELLE [Concomitant]
     Active Substance: ESTRADIOL
  82. ONDANSETRON [Concomitant]
     Active Substance: ONDANSETRON
  83. TRAMADOL [Concomitant]
     Active Substance: TRAMADOL
  84. OXYCODONE AND ACETAMINOPHEN [Concomitant]
     Active Substance: ACETAMINOPHEN\OXYCODONE HYDROCHLORIDE
  85. HYDROMET [HYDROCHLOROTHIAZIDE;METHYLDOPA] [Concomitant]
  86. AZITHROMYCIN [Concomitant]
     Active Substance: AZITHROMYCIN
  87. BENZONATATE [Concomitant]
     Active Substance: BENZONATATE
  88. LEVOFLOXACIN [Concomitant]
     Active Substance: LEVOFLOXACIN
  89. DIAZEPAM [Concomitant]
     Active Substance: DIAZEPAM
  90. FLUCONAZOLE [Concomitant]
     Active Substance: FLUCONAZOLE
     Dosage: UNK
     Dates: start: 2013, end: 2014

REACTIONS (56)
  - Impaired work ability [Unknown]
  - Surgery [Unknown]
  - Headache [Unknown]
  - Headache [Unknown]
  - Headache [Recovered/Resolved]
  - Headache [Recovered/Resolved]
  - Headache [Recovered/Resolved]
  - Headache [Unknown]
  - Headache [Recovered/Resolved]
  - Headache [Recovered/Resolved]
  - Headache [Recovered/Resolved]
  - Headache [Recovered/Resolved]
  - Headache [Recovered/Resolved]
  - Headache [Recovered/Resolved]
  - Headache [Recovered/Resolved]
  - Headache [Recovered/Resolved]
  - Back pain [Recovered/Resolved]
  - Headache [Recovered/Resolved]
  - Back pain [Recovered/Resolved]
  - Headache [Recovered/Resolved]
  - Headache [Recovered/Resolved]
  - Headache [Recovered/Resolved]
  - Headache [Recovered/Resolved]
  - Headache [Recovered/Resolved]
  - Headache [Unknown]
  - Headache [Unknown]
  - Headache [Recovered/Resolved]
  - Headache [Recovered/Resolved]
  - Headache [Recovered/Resolved]
  - Headache [Recovered/Resolved]
  - Headache [Unknown]
  - Headache [Recovered/Resolved]
  - Headache [Unknown]
  - Headache [Recovered/Resolved]
  - Headache [Unknown]
  - Headache [Unknown]
  - Headache [Unknown]
  - Fatigue [Unknown]
  - Headache [Unknown]
  - Fatigue [Unknown]
  - Headache [Unknown]
  - Fatigue [Unknown]
  - Headache [Unknown]
  - Fatigue [Unknown]
  - Headache [Unknown]
  - Fatigue [Unknown]
  - Headache [Unknown]
  - Fatigue [Unknown]
  - Headache [Unknown]
  - Fatigue [Unknown]
  - Headache [Unknown]
  - Fatigue [Unknown]
  - Headache [Unknown]
  - Fatigue [Unknown]
  - No adverse event [Unknown]
  - Therapy cessation [Unknown]

NARRATIVE: CASE EVENT DATE: 20110527
